FAERS Safety Report 5936817-1 (Version None)
Quarter: 2008Q4

REPORT INFORMATION
  Report Type: 
  Country: None (occurrence: None)
  Receive Date: 20081029
  Receipt Date: 20081015
  Transmission Date: 20090506
  Serious: Yes (Death)
  Sender: FDA-Public Use
  Company Number: ADE08001-L

PATIENT
  Age: 55 Year
  Sex: Male

DRUGS (10)
  1. CYCLOSPORINE [Suspect]
     Indication: IMMUNOSUPPRESSION
     Dosage: 125 MG 2X DAILY - ORAL
     Route: 048
  2. MYCOPHENOLATE MOFETIL [Concomitant]
  3. PREDNISOLONE [Concomitant]
  4. CHEMOTHERAPY [Concomitant]
  5. BLEOMYCIN SULFATE [Concomitant]
  6. CYCLOPHOSPHAMIDE [Concomitant]
  7. DOXORUBICIN HCL [Concomitant]
  8. VINCRISTINE [Concomitant]
  9. PREDNISONE TAB [Concomitant]
  10. RITUXIMAB [Concomitant]

REACTIONS (8)
  - ANOREXIA [None]
  - B-CELL LYMPHOMA [None]
  - EPSTEIN-BARR VIRUS TEST POSITIVE [None]
  - FATIGUE [None]
  - LYMPHOPROLIFERATIVE DISORDER [None]
  - NAUSEA [None]
  - RENAL FAILURE ACUTE [None]
  - SEPSIS [None]
